FAERS Safety Report 18886551 (Version 1)
Quarter: 2021Q1

REPORT INFORMATION
  Report Type: Spontaneous
  Country: DE (occurrence: DE)
  Receive Date: 20210212
  Receipt Date: 20210212
  Transmission Date: 20210420
  Serious: Yes (Death, Congenital Anomaly)
  Sender: FDA-Public Use
  Company Number: DE-JNJFOC-20210205415

PATIENT
  Age: 1 Day
  Sex: Male
  Weight: .49 kg

DRUGS (8)
  1. ERGENYL CHRONO [Suspect]
     Active Substance: VALPROIC ACID
     Indication: BIPOLAR DISORDER
     Dosage: 900 [MG/D]
     Route: 064
  2. DEPO?CLINOVIR [Suspect]
     Active Substance: MEDROXYPROGESTERONE ACETATE
     Indication: INJECTABLE CONTRACEPTION
     Dosage: GESTATION PERIOD: 1 (TRIMESTER)
     Route: 064
     Dates: start: 20150617, end: 20150703
  3. RISPERDAL CONSTA [Suspect]
     Active Substance: RISPERIDONE
  4. TRIMIPRAMINE [Suspect]
     Active Substance: TRIMIPRAMINE
     Indication: BIPOLAR DISORDER
     Route: 064
  5. NOVOTHYRAL [Concomitant]
     Active Substance: LEVOTHYROXINE SODIUM\LIOTHYRONINE SODIUM
     Indication: HYPOTHYROIDISM
     Dosage: 100 [UG/D ]
     Route: 064
     Dates: start: 20150617, end: 20151118
  6. RISPERDAL CONSTA [Suspect]
     Active Substance: RISPERIDONE
     Indication: BIPOLAR DISORDER
     Route: 064
  7. RISPERDAL CONSTA [Suspect]
     Active Substance: RISPERIDONE
  8. RISPERDAL CONSTA [Suspect]
     Active Substance: RISPERIDONE

REACTIONS (3)
  - Foetal exposure during pregnancy [Unknown]
  - Congenital hydrocephalus [Not Recovered/Not Resolved]
  - Atrial septal defect [Not Recovered/Not Resolved]

NARRATIVE: CASE EVENT DATE: 20151118
